FAERS Safety Report 7414395-8 (Version None)
Quarter: 2011Q2

REPORT INFORMATION
  Report Type: 
  Country: None (occurrence: None)
  Receive Date: 20110414
  Receipt Date: 20110406
  Transmission Date: 20111010
  Serious: Yes (Hospitalization, Other)
  Sender: FDA-Public Use
  Company Number: US-US-EMD SERONO, INC.-7003065

PATIENT
  Sex: Male
  Weight: 111 kg

DRUGS (4)
  1. UNSPECIFIED BIPOLAR MEDICATION [Concomitant]
     Indication: BIPOLAR DISORDER
  2. COREG [Concomitant]
     Indication: PROPHYLAXIS
  3. REBIF [Suspect]
     Indication: MULTIPLE SCLEROSIS
     Route: 058
     Dates: start: 20090821
  4. WELLBUTRIN [Concomitant]
     Indication: DEPRESSION

REACTIONS (6)
  - SUICIDE ATTEMPT [None]
  - SUICIDAL IDEATION [None]
  - INJECTION SITE PAIN [None]
  - INJECTION SITE INFECTION [None]
  - BIPOLAR DISORDER [None]
  - MUSCULAR WEAKNESS [None]
